FAERS Safety Report 17407449 (Version 3)
Quarter: 2023Q1

REPORT INFORMATION
  Report Type: Spontaneous
  Country: US (occurrence: US)
  Receive Date: 20200212
  Receipt Date: 20230328
  Transmission Date: 20230417
  Serious: No
  Sender: FDA-Public Use
  Company Number: US-KYOWAKIRIN-2020BKK001385

PATIENT

DRUGS (2)
  1. CRYSVITA [Suspect]
     Active Substance: BUROSUMAB-TWZA
     Indication: Hereditary hypophosphataemic rickets
     Dosage: 50 MG, EVERY TWO WEEKS
     Route: 058
     Dates: start: 20180613
  2. CRYSVITA [Suspect]
     Active Substance: BUROSUMAB-TWZA
     Dosage: 70 MG, 1X/4 WEEKS
     Route: 058

REACTIONS (2)
  - Inappropriate schedule of product administration [Recovered/Resolved]
  - Overdose [Unknown]
